FAERS Safety Report 9029465 (Version 1)
Quarter: 2013Q1

REPORT INFORMATION
  Report Type: Spontaneous
  Country: US (occurrence: US)
  Receive Date: 20130125
  Receipt Date: 20130125
  Transmission Date: 20140127
  Serious: Yes (Other)
  Sender: FDA-Public Use
  Company Number: US-PFIZER INC-2013028830

PATIENT
  Age: 50 Year
  Sex: Female
  Weight: 103 kg

DRUGS (3)
  1. PREMARIN [Suspect]
     Indication: HORMONE REPLACEMENT THERAPY
     Dosage: 1.25 MG, UNK
     Route: 048
  2. PREMARIN [Suspect]
     Dosage: 0.625 MG, UNK
     Route: 048
  3. SPIRONOLACTONE [Concomitant]
     Indication: HYPERTENSION
     Dosage: UNK

REACTIONS (3)
  - Breast mass [Unknown]
  - Gastric disorder [Unknown]
  - Gastrointestinal disorder [Unknown]
